FAERS Safety Report 23322812 (Version 1)
Quarter: 2023Q4

REPORT INFORMATION
  Report Type: Spontaneous
  Country: US (occurrence: US)
  Receive Date: 20231220
  Receipt Date: 20231220
  Transmission Date: 20240110
  Serious: Yes (Hospitalization, Other)
  Sender: FDA-Public Use
  Company Number: US-HLS-202301934

PATIENT
  Sex: Female

DRUGS (1)
  1. CLOZAPINE [Suspect]
     Active Substance: CLOZAPINE
     Indication: Product used for unknown indication
     Dosage: 1) 200MG IN THE MORNING AND 400MG AT BEDTIME?2)200MG IN THE MORNING AND 450MG AT BEDTIME
     Route: 065

REACTIONS (2)
  - Intestinal obstruction [Unknown]
  - Septic shock [Unknown]
